FAERS Safety Report 18371892 (Version 1)
Quarter: 2020Q4

REPORT INFORMATION
  Report Type: Spontaneous
  Country: CN (occurrence: CN)
  Receive Date: 20201012
  Receipt Date: 20201012
  Transmission Date: 20210114
  Serious: Yes (Hospitalization, Other)
  Sender: FDA-Public Use
  Company Number: CN-009507513-2010CHN001323

PATIENT
  Age: 59 Year
  Sex: Female
  Weight: 51 kg

DRUGS (6)
  1. DOXOFYLLINE [Concomitant]
     Active Substance: DOXOFYLLINE
     Dosage: 100ML 0.3G QD
     Route: 041
     Dates: start: 20200921, end: 20200927
  2. SODIUM CHLORIDE. [Concomitant]
     Active Substance: SODIUM CHLORIDE
     Indication: ANTI-INFECTIVE THERAPY
     Dosage: 100 ML Q12H
     Route: 041
     Dates: start: 20200921, end: 20200927
  3. TIENAM [Suspect]
     Active Substance: CILASTATIN SODIUM\IMIPENEM
     Indication: ANTI-INFECTIVE THERAPY
     Dosage: 1 G IVGTT, TID
     Route: 041
     Dates: start: 20200921, end: 20200923
  4. SODIUM CHLORIDE. [Concomitant]
     Active Substance: SODIUM CHLORIDE
     Dosage: 100 ML Q8H
     Route: 041
  5. VANCOMYCIN [Concomitant]
     Active Substance: VANCOMYCIN
     Indication: ANTI-INFECTIVE THERAPY
     Dosage: 1 G Q12H
     Route: 041
     Dates: start: 20200921, end: 20200927
  6. AMBROXOL [Concomitant]
     Active Substance: AMBROXOL
     Dosage: 45 MG TID
     Route: 041
     Dates: start: 20200921, end: 20200927

REACTIONS (4)
  - Epilepsy [Recovering/Resolving]
  - C-reactive protein abnormal [Unknown]
  - White blood cell count [Unknown]
  - Neutrophil percentage abnormal [Unknown]

NARRATIVE: CASE EVENT DATE: 20200922
